FAERS Safety Report 6661462 (Version 2)
Quarter: 2013Q1

REPORT INFORMATION
  Report Type: Spontaneous
  Country: DE (occurrence: None)
  Receive Date: 20080527
  Receipt Date: 20130117
  Transmission Date: 20140127
  Serious: Yes (Hospitalization)
  Sender: FDA-Public Use
  Company Number: 2008AP001227

PATIENT
  Age: 27 Year
  Sex: Female

DRUGS (4)
  1. CARBAMAZEPINE [Suspect]
     Indication: AGITATION
  2. VALPROATE SODIUM [Suspect]
     Indication: PSYCHOTIC DISORDER
  3. UNSPECIFIED INGREDIENT [Suspect]
     Indication: AGITATION
  4. UNSPECIFIED INGREDIENT [Suspect]
     Indication: PSYCHOTIC DISORDER

REACTIONS (9)
  - Myxoedema coma [None]
  - Diabetic ketoacidosis [None]
  - Electrocardiogram repolarisation abnormality [None]
  - Hyperglycaemia [None]
  - Glycosuria [None]
  - Ketoacidosis [None]
  - Bradycardia [None]
  - Periorbital oedema [None]
  - Hypothyroidism [None]
